FAERS Safety Report 11025255 (Version 1)
Quarter: 2015Q2

REPORT INFORMATION
  Report Type: Report from Study
  Country: JP (occurrence: JP)
  Receive Date: 20150414
  Receipt Date: 20150414
  Transmission Date: 20150821
  Serious: Yes (Hospitalization)
  Sender: FDA-Public Use
  Company Number: JP-EISAI MEDICAL RESEARCH-EC-2014-002012

PATIENT
  Age: 71 Year
  Sex: Male
  Weight: 71 kg

DRUGS (11)
  1. JANUVIA [Concomitant]
     Active Substance: SITAGLIPTIN PHOSPHATE
  2. NU-LOTAN [Concomitant]
     Active Substance: LOSARTAN POTASSIUM
  3. AMARYL [Concomitant]
     Active Substance: GLIMEPIRIDE
  4. ALDACTONE [Concomitant]
     Active Substance: SPIRONOLACTONE
  5. XYZAL [Concomitant]
     Active Substance: LEVOCETIRIZINE DIHYDROCHLORIDE
  6. LENVATINIB [Suspect]
     Active Substance: LENVATINIB
     Indication: HEPATOCELLULAR CARCINOMA
     Route: 048
     Dates: start: 20141031, end: 20141117
  7. TENORMIN [Concomitant]
     Active Substance: ATENOLOL
  8. MOHRUS TAPE L [Concomitant]
  9. NORVASC [Concomitant]
     Active Substance: AMLODIPINE BESYLATE
  10. PARIET [Concomitant]
     Active Substance: RABEPRAZOLE SODIUM
  11. URSO [Concomitant]
     Active Substance: URSODIOL

REACTIONS (3)
  - Renal impairment [Recovered/Resolved]
  - Portal vein thrombosis [Recovered/Resolved]
  - Hepatic function abnormal [Recovered/Resolved]

NARRATIVE: CASE EVENT DATE: 20141121
